FAERS Safety Report 15468987 (Version 2)
Quarter: 2018Q4

REPORT INFORMATION
  Report Type: Report from Study
  Country: US (occurrence: US)
  Receive Date: 20181005
  Receipt Date: 20181205
  Transmission Date: 20190205
  Serious: Yes (Death, Other)
  Sender: FDA-Public Use
  Company Number: US-009507513-1810USA000775

PATIENT
  Sex: Female

DRUGS (5)
  1. MORPHINE [Concomitant]
     Active Substance: MORPHINE
  2. ZOFRAN [Concomitant]
     Active Substance: ONDANSETRON HYDROCHLORIDE
  3. KEYTRUDA [Suspect]
     Active Substance: PEMBROLIZUMAB
     Indication: OVARIAN CANCER
     Dosage: 200MG/ EVERY 3 WEEKS
     Route: 042
     Dates: start: 20171022
  4. XANAX [Concomitant]
     Active Substance: ALPRAZOLAM
  5. ATROPINE. [Concomitant]
     Active Substance: ATROPINE

REACTIONS (2)
  - Malignant neoplasm progression [Fatal]
  - Product use in unapproved indication [Unknown]
